FAERS Safety Report 9258884 (Version 1)
Quarter: 2013Q2

REPORT INFORMATION
  Report Type: Spontaneous
  Country: US (occurrence: US)
  Receive Date: 20130426
  Receipt Date: 20130426
  Transmission Date: 20140414
  Serious: Yes (Other)
  Sender: FDA-Public Use
  Company Number: US-GLAXOSMITHKLINE-A1021465A

PATIENT
  Age: 62 Year
  Sex: Female
  Weight: 50.9 kg

DRUGS (6)
  1. REQUIP [Suspect]
     Indication: RESTLESS LEGS SYNDROME
     Route: 048
     Dates: start: 20130314, end: 20130316
  2. NEURONTIN [Suspect]
     Indication: NEURALGIA
     Route: 048
  3. LYRICA [Suspect]
     Indication: RESTLESS LEGS SYNDROME
     Route: 048
  4. SYNTHROID [Concomitant]
  5. XANAX [Concomitant]
  6. BLOOD PRESSURE MEDICATION [Concomitant]
     Indication: HYPERTENSION

REACTIONS (9)
  - Loss of consciousness [Unknown]
  - Blood pressure decreased [Unknown]
  - Hyperhidrosis [Unknown]
  - Nausea [Unknown]
  - Dysphagia [Unknown]
  - Dizziness [Unknown]
  - Syncope [Unknown]
  - Feeling abnormal [Unknown]
  - Somnolence [Unknown]
